FAERS Safety Report 7561504-6 (Version None)
Quarter: 2011Q2

REPORT INFORMATION
  Report Type: 
  Country: None (occurrence: None)
  Receive Date: 20110621
  Receipt Date: 20110609
  Transmission Date: 20111010
  Serious: Yes (Hospitalization)
  Sender: FDA-Public Use
  Company Number: US-AMGEN-USASP2011011856

PATIENT
  Age: 51 Year
  Sex: Female

DRUGS (2)
  1. ENBREL [Suspect]
     Indication: ANKYLOSING SPONDYLITIS
     Dosage: 50 MG, QWK
     Dates: start: 20110128
  2. ENBREL [Suspect]
     Dosage: 50 MG, QWK
     Dates: start: 20110101, end: 20110603

REACTIONS (6)
  - TENDONITIS [None]
  - ANKYLOSING SPONDYLITIS [None]
  - RIB DEFORMITY [None]
  - COLLAPSE OF LUNG [None]
  - HYPOXIA [None]
  - THERAPEUTIC RESPONSE DECREASED [None]
